FAERS Safety Report 10370987 (Version 1)
Quarter: 2014Q3

REPORT INFORMATION
  Report Type: Spontaneous
  Country: US (occurrence: US)
  Receive Date: 20140808
  Receipt Date: 20140808
  Transmission Date: 20150326
  Serious: No
  Sender: FDA-Public Use
  Company Number: US-ENDO PHARMACEUTICALS INC.-CLOZ20140020

PATIENT
  Sex: Female

DRUGS (2)
  1. CLONAZEPAM 2MG [Suspect]
     Active Substance: CLONAZEPAM
     Route: 048
     Dates: end: 2014
  2. CLONAZEPAM 2MG [Suspect]
     Active Substance: CLONAZEPAM
     Indication: ANXIETY
     Route: 048
     Dates: end: 2014

REACTIONS (1)
  - Drug effect decreased [Recovered/Resolved]

NARRATIVE: CASE EVENT DATE: 2014
